FAERS Safety Report 4737544-9 (Version None)
Quarter: 2005Q3

REPORT INFORMATION
  Report Type: 
  Country: None (occurrence: None)
  Receive Date: 20050809
  Receipt Date: 20050503
  Transmission Date: 20060218
  Serious: No
  Sender: FDA-Public Use
  Company Number: US-GLAXOSMITHKLINE-A0557019A

PATIENT
  Age: 36 Year
  Sex: Male

DRUGS (1)
  1. COMMIT [Suspect]
     Dates: start: 20050413

REACTIONS (4)
  - HICCUPS [None]
  - ORAL DISCOMFORT [None]
  - STOMACH DISCOMFORT [None]
  - STOMATITIS [None]
